FAERS Safety Report 5893193-0 (Version None)
Quarter: 2008Q3

REPORT INFORMATION
  Report Type: 
  Country: None (occurrence: None)
  Receive Date: 20080923
  Receipt Date: 20070730
  Transmission Date: 20090109
  Serious: No
  Sender: FDA-Public Use
  Company Number: US-ASTRAZENECA-2007UW18254

PATIENT
  Sex: Male

DRUGS (2)
  1. SEROQUEL [Suspect]
     Indication: BIPOLAR DISORDER
     Route: 048
     Dates: start: 20070728
  2. AVANDIA [Concomitant]

REACTIONS (7)
  - DYSARTHRIA [None]
  - EYE SWELLING [None]
  - FEELING ABNORMAL [None]
  - MUSCULOSKELETAL PAIN [None]
  - PUPILLARY DISORDER [None]
  - SOMNOLENCE [None]
  - TREMOR [None]
